FAERS Safety Report 8135347-9 (Version None)
Quarter: 2012Q1

REPORT INFORMATION
  Report Type: 
  Country: None (occurrence: None)
  Receive Date: 20120214
  Receipt Date: 20120207
  Transmission Date: 20120608
  Serious: Yes (Other)
  Sender: FDA-Public Use
  Company Number: US-RB-034654-12

PATIENT
  Age: 19 Year
  Sex: Male

DRUGS (1)
  1. DELSYM [Suspect]
     Indication: PRODUCT USED FOR UNKNOWN INDICATION
     Dosage: INGESTED 5 OZ BOTTLE OF THE PRODUCT
     Route: 048

REACTIONS (2)
  - FEELING ABNORMAL [None]
  - DRUG ABUSE [None]
